FAERS Safety Report 16420022 (Version 1)
Quarter: 2019Q2

REPORT INFORMATION
  Report Type: Spontaneous
  Country: US (occurrence: US)
  Receive Date: 20190504
  Receipt Date: 20190504
  Transmission Date: 20190711
  Serious: Yes (Hospitalization)
  Sender: FDA-Public Use
  Company Number: None

PATIENT
  Age: 74 Year
  Sex: Male

DRUGS (2)
  1. ASPIRIN. [Suspect]
     Active Substance: ASPIRIN
     Indication: PROPHYLAXIS
     Route: 048
     Dates: start: 20190110
  2. EDOXABAN [Suspect]
     Active Substance: EDOXABAN TOSYLATE
     Indication: DEEP VEIN THROMBOSIS
     Route: 048
     Dates: start: 20181227, end: 20190315

REACTIONS (3)
  - Lower gastrointestinal haemorrhage [None]
  - Acute myocardial infarction [None]
  - Dieulafoy^s vascular malformation [None]

NARRATIVE: CASE EVENT DATE: 20190315
